FAERS Safety Report 19077127 (Version 1)
Quarter: 2021Q1

REPORT INFORMATION
  Report Type: Spontaneous
  Country: GB (occurrence: GB)
  Receive Date: 20210331
  Receipt Date: 20210331
  Transmission Date: 20210420
  Serious: Yes (Other)
  Sender: FDA-Public Use
  Company Number: GB-TEVA-2021-GB-1894192

PATIENT
  Sex: Female

DRUGS (12)
  1. CUBICIN [Interacting]
     Active Substance: DAPTOMYCIN
     Indication: APLASTIC ANAEMIA
     Route: 065
  2. RIFAMPIN. [Interacting]
     Active Substance: RIFAMPIN
     Indication: ENDOCARDITIS BACTERIAL
  3. FLUCONAZOLE. [Interacting]
     Active Substance: FLUCONAZOLE
     Indication: APLASTIC ANAEMIA
  4. DAPTOMYCIN. [Interacting]
     Active Substance: DAPTOMYCIN
     Indication: ENDOCARDITIS BACTERIAL
     Route: 065
  5. RIFAMPIN. [Interacting]
     Active Substance: RIFAMPIN
     Indication: APLASTIC ANAEMIA
     Route: 065
  6. CIPROFLOXACIN. [Suspect]
     Active Substance: CIPROFLOXACIN
     Indication: APLASTIC ANAEMIA
     Route: 065
  7. CUBICIN [Interacting]
     Active Substance: DAPTOMYCIN
     Indication: ENDOCARDITIS BACTERIAL
  8. CIPROFLOXACIN. [Interacting]
     Active Substance: CIPROFLOXACIN
     Indication: ENDOCARDITIS BACTERIAL
  9. DAPTOMYCIN. [Interacting]
     Active Substance: DAPTOMYCIN
     Indication: APLASTIC ANAEMIA
  10. CYCLOSPORINE. [Interacting]
     Active Substance: CYCLOSPORINE
     Indication: ENDOCARDITIS BACTERIAL
  11. CYCLOSPORINE. [Interacting]
     Active Substance: CYCLOSPORINE
     Indication: APLASTIC ANAEMIA
     Route: 065
  12. FLUCONAZOLE. [Interacting]
     Active Substance: FLUCONAZOLE
     Indication: ENDOCARDITIS BACTERIAL
     Route: 065

REACTIONS (1)
  - Drug interaction [Unknown]
